FAERS Safety Report 6613524-3 (Version None)
Quarter: 2010Q1

REPORT INFORMATION
  Report Type: 
  Country: None (occurrence: None)
  Receive Date: 20100304
  Receipt Date: 20100223
  Transmission Date: 20100710
  Serious: No
  Sender: FDA-Public Use
  Company Number: JP-ABBOTT-09P-087-0613859-00

PATIENT
  Sex: Female

DRUGS (5)
  1. CLARITH [Suspect]
     Indication: UPPER RESPIRATORY TRACT INFLAMMATION
     Dosage: ROUTE: TUBE
     Dates: start: 20091116, end: 20091122
  2. MEIACT [Suspect]
     Indication: UPPER RESPIRATORY TRACT INFLAMMATION
     Dosage: ROUTE: TUBE
     Dates: start: 20091109, end: 20091115
  3. LOXONIN FGR [Concomitant]
     Indication: UPPER RESPIRATORY TRACT INFLAMMATION
     Dosage: ROUTE: TUBE
     Dates: start: 20091109, end: 20091122
  4. LAC B N [Concomitant]
     Indication: DIARRHOEA
     Dosage: ROUTE: TUBE
     Dates: start: 20091113
  5. MIYA BM [Concomitant]
     Indication: DIARRHOEA
     Dosage: ROUTE: TUBE
     Dates: start: 20091116

REACTIONS (1)
  - PSEUDOMEMBRANOUS COLITIS [None]
